FAERS Safety Report 7025150-5 (Version None)
Quarter: 2010Q4

REPORT INFORMATION
  Report Type: 
  Country: None (occurrence: None)
  Receive Date: 20101001
  Receipt Date: 20100922
  Transmission Date: 20110411
  Serious: Yes (Hospitalization, Other)
  Sender: FDA-Public Use
  Company Number: US-ABBOTT-10P-163-0672606-00

PATIENT
  Sex: Female
  Weight: 62 kg

DRUGS (8)
  1. ACETAMINOPHEN AND HYDROCODONE BITARTRATE [Suspect]
     Indication: PRODUCT USED FOR UNKNOWN INDICATION
  2. ALCOHOL [Suspect]
     Indication: PRODUCT USED FOR UNKNOWN INDICATION
  3. AMBIEN [Suspect]
     Indication: INSOMNIA
     Route: 048
  4. LASIX [Concomitant]
     Indication: PRODUCT USED FOR UNKNOWN INDICATION
  5. LEVOTHYROXINE SODIUM [Concomitant]
     Indication: PRODUCT USED FOR UNKNOWN INDICATION
  6. PANTOPRAZOLE [Concomitant]
     Indication: PRODUCT USED FOR UNKNOWN INDICATION
  7. TYLENOL PM [Concomitant]
     Indication: PRODUCT USED FOR UNKNOWN INDICATION
  8. PROTONIX [Concomitant]
     Indication: PRODUCT USED FOR UNKNOWN INDICATION

REACTIONS (16)
  - ANORGASMIA [None]
  - DISORIENTATION [None]
  - FEELING ABNORMAL [None]
  - HALLUCINATION, VISUAL [None]
  - HYPOAESTHESIA [None]
  - IMPAIRED DRIVING ABILITY [None]
  - MENTAL STATUS CHANGES [None]
  - MUSCULAR WEAKNESS [None]
  - MYOFASCIAL PAIN SYNDROME [None]
  - PAIN IN EXTREMITY [None]
  - PIRIFORMIS SYNDROME [None]
  - ROAD TRAFFIC ACCIDENT [None]
  - SENSATION OF HEAVINESS [None]
  - SLEEP TALKING [None]
  - SOMNAMBULISM [None]
  - TRANSIENT GLOBAL AMNESIA [None]
